FAERS Safety Report 22600801 (Version 1)
Quarter: 2023Q2

REPORT INFORMATION
  Report Type: Spontaneous
  Country: JP (occurrence: JP)
  Receive Date: 20230614
  Receipt Date: 20230614
  Transmission Date: 20230722
  Serious: Yes (Other)
  Sender: FDA-Public Use
  Company Number: JP-SUN PHARMACEUTICAL INDUSTRIES LTD-2023RR-394402

PATIENT
  Age: 57 Year
  Sex: Male

DRUGS (16)
  1. DONEPEZIL [Suspect]
     Active Substance: DONEPEZIL
     Indication: Parkinson^s disease
     Dosage: UNK
     Route: 065
  2. ESCITALOPRAM [Suspect]
     Active Substance: ESCITALOPRAM OXALATE
     Indication: Parkinson^s disease
     Dosage: 10 MILLIGRAM
     Route: 065
     Dates: start: 2021, end: 2021
  3. CARBIDOPA AND LEVODOPA [Suspect]
     Active Substance: CARBIDOPA\LEVODOPA
     Indication: Parkinson^s disease
     Dosage: 500 MILLIGRAM, DAILY
     Route: 065
     Dates: end: 201910
  4. CARBIDOPA AND LEVODOPA [Suspect]
     Active Substance: CARBIDOPA\LEVODOPA
     Dosage: 700 MILLIGRAM, DAILY
     Route: 065
     Dates: start: 201910, end: 202109
  5. CARBIDOPA AND LEVODOPA [Suspect]
     Active Substance: CARBIDOPA\LEVODOPA
     Dosage: 1200 MILLIGRAM, DAILY
     Route: 065
     Dates: start: 202109
  6. CARBIDOPA AND LEVODOPA [Suspect]
     Active Substance: CARBIDOPA\LEVODOPA
     Dosage: 700 MILLIGRAM, DAILY
     Route: 065
  7. CARBIDOPA AND LEVODOPA [Suspect]
     Active Substance: CARBIDOPA\LEVODOPA
     Dosage: 600 MILLIGRAM, DAILY
     Route: 065
  8. CARBIDOPA AND LEVODOPA [Suspect]
     Active Substance: CARBIDOPA\LEVODOPA
     Dosage: 500 MILLIGRAM, DAILY
     Route: 065
  9. ZONISAMIDE [Suspect]
     Active Substance: ZONISAMIDE
     Indication: Parkinson^s disease
     Dosage: 25 MILLIGRAM
     Route: 065
     Dates: start: 2019, end: 2021
  10. ZONISAMIDE [Suspect]
     Active Substance: ZONISAMIDE
     Dosage: 50 MILLIGRAM
     Route: 065
     Dates: start: 2019, end: 2021
  11. ISTRADEFYLLINE [Suspect]
     Active Substance: ISTRADEFYLLINE
     Indication: Parkinson^s disease
     Dosage: 40 MILLIGRAM
     Route: 065
     Dates: start: 2019, end: 2021
  12. ISTRADEFYLLINE [Suspect]
     Active Substance: ISTRADEFYLLINE
     Dosage: 20 MILLIGRAM
     Route: 065
     Dates: start: 2021, end: 2021
  13. OPICAPONE [Suspect]
     Active Substance: OPICAPONE
     Indication: Parkinson^s disease
     Dosage: 25 MILLIGRAM
     Route: 065
     Dates: start: 2019, end: 2021
  14. ROTIGOTINE [Suspect]
     Active Substance: ROTIGOTINE
     Indication: Parkinson^s disease
     Dosage: 27 MILLIGRAM
     Dates: start: 2019, end: 2021
  15. ROTIGOTINE [Suspect]
     Active Substance: ROTIGOTINE
     Dosage: 22.5 MILLIGRAM
     Route: 065
     Dates: start: 2021, end: 2021
  16. SELEGILINE [Suspect]
     Active Substance: SELEGILINE
     Indication: Parkinson^s disease
     Dosage: 2.5 MILLIGRAM
     Route: 065
     Dates: start: 2019, end: 2020

REACTIONS (2)
  - Off label use [Unknown]
  - Cotard^s syndrome [Recovered/Resolved]
